FAERS Safety Report 8863369 (Version 1)
Quarter: 2012Q4

REPORT INFORMATION
  Report Type: 
  Country: CN (occurrence: CN)
  Receive Date: 20121025
  Receipt Date: 20121025
  Transmission Date: 20130627
  Serious: Yes (Other)
  Sender: FDA-Public Use
  Company Number: CN-GLAXOSMITHKLINE-B0840034A

PATIENT
  Age: 34 Year
  Sex: Male
  Weight: 52 kg

DRUGS (1)
  1. BECONASE [Suspect]
     Indication: VASOMOTOR RHINITIS
     Dosage: 50MCG Three times per day
     Route: 045
     Dates: start: 20110916, end: 20110916

REACTIONS (2)
  - Laryngeal oedema [Recovering/Resolving]
  - Pharyngeal oedema [Recovering/Resolving]
